FAERS Safety Report 8499260 (Version 2)
Quarter: 2012Q4

REPORT INFORMATION
  Report Type: 
  Country: JP (occurrence: JP)
  Receive Date: 20120409
  Receipt Date: 20120907
  Transmission Date: 20130627
  Serious: Yes (Hospitalization)
  Sender: FDA-Public Use
  Company Number: JP-ELI_LILLY_AND_COMPANY-JP201203007126

PATIENT
  Age: 29 Year
  Sex: Male

DRUGS (8)
  1. STRATTERA [Suspect]
     Indication: ATTENTION DEFICIT/HYPERACTIVITY DISORDER
     Dosage: 10 mg, bid
     Route: 048
     Dates: start: 20111019, end: 20111206
  2. STRATTERA [Suspect]
     Dosage: 25 mg, bid
     Route: 048
     Dates: start: 20111207, end: 20120131
  3. STRATTERA [Suspect]
     Dosage: 37.5 mg, bid
     Route: 048
     Dates: start: 20120201, end: 20120409
  4. VEGETAMIN B [Concomitant]
     Indication: INSOMNIA
     Dosage: UNK
     Route: 048
     Dates: start: 20110520, end: 20120409
  5. LENDORMIN [Concomitant]
     Indication: INSOMNIA
     Dosage: UNK
     Route: 048
     Dates: start: 20110520
  6. ROHYPNOL [Concomitant]
     Indication: INSOMNIA
     Dosage: UNK
     Route: 048
     Dates: start: 20110520, end: 20120409
  7. DEPAS [Concomitant]
     Indication: INSOMNIA
     Dosage: UNK
     Route: 048
     Dates: start: 20110520, end: 20120409
  8. BENZALIN [Concomitant]
     Indication: INSOMNIA
     Dosage: 5 mg, prn
     Route: 048
     Dates: start: 20110520

REACTIONS (5)
  - Paranoia [Recovered/Resolved]
  - Hallucination [Recovered/Resolved]
  - Road traffic accident [Recovered/Resolved]
  - Off label use [Recovered/Resolved]
  - Insomnia [Unknown]
